FAERS Safety Report 7991615-2 (Version None)
Quarter: 2011Q4

REPORT INFORMATION
  Report Type: 
  Country: None (occurrence: None)
  Receive Date: 20111219
  Receipt Date: 20111026
  Transmission Date: 20120403
  Serious: No
  Sender: FDA-Public Use
  Company Number: US-ALLERGAN-1114112US

PATIENT
  Age: 74 Year
  Sex: Female
  Weight: 56.689 kg

DRUGS (3)
  1. LUMIGAN [Suspect]
     Dosage: 1 GTT, QHS
     Route: 047
     Dates: start: 20110919, end: 20111009
  2. SYSTANE [Concomitant]
     Indication: DRY EYE
  3. LUMIGAN [Suspect]
     Indication: GLAUCOMA
     Dosage: 2 GTT, QHS
     Route: 047
     Dates: start: 20111010, end: 20111020

REACTIONS (5)
  - HEADACHE [None]
  - BACK PAIN [None]
  - PARAESTHESIA [None]
  - RASH [None]
  - OCULAR HYPERAEMIA [None]
